FAERS Safety Report 22189029 (Version 1)
Quarter: 2023Q2

REPORT INFORMATION
  Report Type: Spontaneous
  Country: FR (occurrence: FR)
  Receive Date: 20230410
  Receipt Date: 20230410
  Transmission Date: 20230722
  Serious: Yes (Other)
  Sender: FDA-Public Use
  Company Number: FR-JNJFOC-20230403052

PATIENT
  Sex: Female

DRUGS (2)
  1. IMBRUVICA [Suspect]
     Active Substance: IBRUTINIB
     Indication: Marginal zone lymphoma
     Route: 048
  2. IMBRUVICA [Suspect]
     Active Substance: IBRUTINIB
     Indication: Marginal zone lymphoma
     Route: 048

REACTIONS (30)
  - Mental impairment [Unknown]
  - Gastrointestinal motility disorder [Unknown]
  - Mouth ulceration [Unknown]
  - Onychoclasis [Unknown]
  - Ageusia [Unknown]
  - Parosmia [Unknown]
  - Muscle spasms [Unknown]
  - Dizziness [Unknown]
  - Limb discomfort [Unknown]
  - Initial insomnia [Unknown]
  - Rhinorrhoea [Unknown]
  - Amnesia [Unknown]
  - Off label use [Unknown]
  - Migraine [Unknown]
  - Dyspnoea [Unknown]
  - Myalgia [Unknown]
  - Paraesthesia [Unknown]
  - Muscular weakness [Unknown]
  - Mucosal exfoliation [Unknown]
  - Vision blurred [Unknown]
  - Anosmia [Unknown]
  - Headache [Unknown]
  - Pruritus [Unknown]
  - Acne [Unknown]
  - Chills [Unknown]
  - Dry mouth [Unknown]
  - Gait disturbance [Unknown]
  - Peripheral swelling [Unknown]
  - Hot flush [Unknown]
  - Musculoskeletal discomfort [Unknown]
